FAERS Safety Report 8791697 (Version 3)
Quarter: 2012Q4

REPORT INFORMATION
  Report Type: 
  Country: US (occurrence: US)
  Receive Date: 20120918
  Receipt Date: 20121205
  Transmission Date: 20130627
  Serious: Yes (Other)
  Sender: FDA-Public Use
  Company Number: US-PFIZER INC-2012229457

PATIENT
  Age: 11 Year
  Sex: Male

DRUGS (2)
  1. NEURONTIN [Suspect]
     Indication: NEUROPATHY PERIPHERAL
     Dosage: 300 mg, 3x/day
     Route: 048
     Dates: start: 20110809
  2. NEURONTIN [Suspect]
     Dosage: UNK
     Route: 048
     Dates: start: 20120912, end: 20120914

REACTIONS (1)
  - Cardiac disorder [Unknown]
